FAERS Safety Report 22184599 (Version 1)
Quarter: 2023Q2

REPORT INFORMATION
  Report Type: Spontaneous
  Country: US (occurrence: US)
  Receive Date: 20230407
  Receipt Date: 20230407
  Transmission Date: 20230721
  Serious: Yes (Hospitalization)
  Sender: FDA-Public Use
  Company Number: US-BIOVITRUM-2023-US-01187

PATIENT
  Age: 52 Year
  Sex: Female

DRUGS (1)
  1. DOPTELET [Suspect]
     Active Substance: AVATROMBOPAG MALEATE
     Indication: Thrombocytopenia
     Dosage: 20 MG DAILY
     Route: 048
     Dates: start: 20220810

REACTIONS (3)
  - Product dose omission issue [Unknown]
  - Pyrexia [Unknown]
  - Vomiting [Unknown]
